FAERS Safety Report 17537998 (Version 1)
Quarter: 2020Q1

REPORT INFORMATION
  Report Type: Spontaneous
  Country: US (occurrence: US)
  Receive Date: 20200313
  Receipt Date: 20200313
  Transmission Date: 20200409
  Serious: No
  Sender: FDA-Public Use
  Company Number: US-HIKMA PHARMACEUTICALS USA INC.-US-H14001-19-01401

PATIENT
  Sex: Female

DRUGS (2)
  1. DESVENLAFAXINE. [Suspect]
     Active Substance: DESVENLAFAXINE
     Indication: PRODUCT USED FOR UNKNOWN INDICATION
     Dosage: AT MAXIMAL DOSE OF 150MG TO 200MG
     Route: 048
  2. DESVENLAFAXINE. [Suspect]
     Active Substance: DESVENLAFAXINE
     Route: 048
     Dates: start: 201809

REACTIONS (4)
  - Palpitations [Unknown]
  - Anxiety [Unknown]
  - Menopause [Unknown]
  - Panic attack [Unknown]
